FAERS Safety Report 24647857 (Version 1)
Quarter: 2024Q4

REPORT INFORMATION
  Report Type: Spontaneous
  Country: US (occurrence: None)
  Receive Date: 20241121
  Receipt Date: 20241121
  Transmission Date: 20250115
  Serious: No
  Sender: Public
  Company Number: None

PATIENT
  Age: 28 Year
  Sex: Male
  Weight: 69.75 kg

DRUGS (2)
  1. FINASTERIDE [Suspect]
     Active Substance: FINASTERIDE
     Indication: Alopecia
     Dosage: OTHER QUANTITY : 1 TABLET(S);?
     Route: 048
     Dates: start: 20241004, end: 20241117
  2. BIOTIN [Concomitant]
     Active Substance: BIOTIN

REACTIONS (6)
  - Dyspnoea [None]
  - Chest discomfort [None]
  - Angina pectoris [None]
  - Palpitations [None]
  - Nervousness [None]
  - Feeling abnormal [None]

NARRATIVE: CASE EVENT DATE: 20241117
